FAERS Safety Report 10482625 (Version 2)
Quarter: 2014Q3

REPORT INFORMATION
  Report Type: Spontaneous
  Country: BR (occurrence: BR)
  Receive Date: 20140929
  Receipt Date: 20140929
  Transmission Date: 20150326
  Serious: Yes (Other)
  Sender: FDA-Public Use
  Company Number: PHHY2014BR105371

PATIENT
  Age: 67 Year
  Sex: Female

DRUGS (6)
  1. CLINFAR [Concomitant]
     Active Substance: SIMVASTATIN
     Indication: BLOOD CHOLESTEROL
     Dosage: 2 DF, DAILY
  2. CONCOR [Concomitant]
     Active Substance: BISOPROLOL FUMARATE
     Indication: HYPERTENSION
     Dosage: 1 DF, DAILY
     Route: 048
  3. DILTIAZEM [Concomitant]
     Active Substance: DILTIAZEM
     Indication: CARDIAC HYPERTROPHY
     Dosage: 2 DF, PER DAY
     Route: 048
     Dates: start: 201405
  4. NEOVIT [Concomitant]
     Dosage: 1 DF, PER DAY
     Route: 048
  5. ONBREZ [Suspect]
     Active Substance: INDACATEROL
     Indication: PULMONARY MASS
     Dosage: 150 UG, DAILY
     Route: 055
     Dates: end: 201310
  6. ONBREZ [Suspect]
     Active Substance: INDACATEROL
     Indication: OFF LABEL USE
     Dosage: UNK
     Dates: start: 201406

REACTIONS (4)
  - Fatigue [Not Recovered/Not Resolved]
  - Lower respiratory tract inflammation [Recovering/Resolving]
  - Benign neoplasm of thyroid gland [Recovered/Resolved]
  - Wheezing [Not Recovered/Not Resolved]
